FAERS Safety Report 5393871-6 (Version None)
Quarter: 2007Q3

REPORT INFORMATION
  Report Type: 
  Country: None (occurrence: None)
  Receive Date: 20070723
  Receipt Date: 20070711
  Transmission Date: 20080115
  Serious: Yes (Other)
  Sender: FDA-Public Use
  Company Number: B0479221A

PATIENT

DRUGS (1)
  1. ROSIGLITAZONE MALEATE [Suspect]
     Route: 065

REACTIONS (2)
  - CARDIAC FAILURE [None]
  - VERTIGO [None]
